FAERS Safety Report 11081473 (Version 1)
Quarter: 2015Q2

REPORT INFORMATION
  Report Type: Spontaneous
  Country: US (occurrence: None)
  Receive Date: 20150429
  Receipt Date: 20150429
  Transmission Date: 20150821
  Serious: Yes (Life-Threatening, Hospitalization)
  Sender: FDA-Public Use
  Company Number: NSR_02057_2015

PATIENT
  Age: 15 Year
  Sex: Male
  Weight: 40 kg

DRUGS (5)
  1. ANESTHESIA [Concomitant]
     Active Substance: UNSPECIFIED INGREDIENT
  2. LORAZEPAM. [Concomitant]
     Active Substance: LORAZEPAM
  3. CLONAZEPAM. [Concomitant]
     Active Substance: CLONAZEPAM
  4. BACLOFEN. [Suspect]
     Active Substance: BACLOFEN
     Indication: QUADRIPARESIS
     Route: 037
  5. PROPOFOL. [Concomitant]
     Active Substance: PROPOFOL

REACTIONS (14)
  - Agitation [None]
  - Implant site reaction [None]
  - Systolic hypertension [None]
  - Muscle spasticity [None]
  - Rebound effect [None]
  - Purulence [None]
  - Tachycardia [None]
  - CSF test abnormal [None]
  - Drug withdrawal syndrome [None]
  - Procedural pain [None]
  - Clonus [None]
  - Implant site infection [None]
  - Staphylococcus test positive [None]
  - Discomfort [None]
